FAERS Safety Report 19828059 (Version 1)
Quarter: 2021Q3

REPORT INFORMATION
  Report Type: Spontaneous
  Country: CN (occurrence: CN)
  Receive Date: 20210914
  Receipt Date: 20210914
  Transmission Date: 20211014
  Serious: Yes (Hospitalization)
  Sender: FDA-Public Use
  Company Number: CN-ROCHE-2910055

PATIENT
  Sex: Female

DRUGS (2)
  1. GAVRETO [Suspect]
     Active Substance: PRALSETINIB
     Indication: PRODUCT USED FOR UNKNOWN INDICATION
     Route: 048
     Dates: start: 20210624, end: 20210714
  2. GAVRETO [Suspect]
     Active Substance: PRALSETINIB
     Route: 048
     Dates: start: 2021, end: 20210831

REACTIONS (5)
  - Abdominal pain upper [Recovered/Resolved]
  - Gastritis [Recovering/Resolving]
  - Pyrexia [Recovered/Resolved]
  - White blood cell count decreased [Unknown]
  - Platelet count decreased [Unknown]

NARRATIVE: CASE EVENT DATE: 20210714
